FAERS Safety Report 7118039-4 (Version None)
Quarter: 2010Q4

REPORT INFORMATION
  Report Type: 
  Country: None (occurrence: None)
  Receive Date: 20101123
  Receipt Date: 20101110
  Transmission Date: 20110411
  Serious: Yes (Hospitalization)
  Sender: FDA-Public Use
  Company Number: US-ELI_LILLY_AND_COMPANY-US201011003740

PATIENT
  Age: 68 Year
  Sex: Male

DRUGS (3)
  1. HUMULIN N [Suspect]
     Indication: DIABETES MELLITUS
     Dosage: 40 U, EACH EVENING
     Dates: start: 19960101
  2. HUMULIN N [Suspect]
     Dosage: 40 U, OTHER
     Dates: start: 19960101
  3. VASOTEC [Concomitant]

REACTIONS (3)
  - HOSPITALISATION [None]
  - NEPHROLITHIASIS [None]
  - SURGERY [None]
